FAERS Safety Report 19824663 (Version 1)
Quarter: 2021Q3

REPORT INFORMATION
  Report Type: Spontaneous
  Country: US (occurrence: US)
  Receive Date: 20210913
  Receipt Date: 20210913
  Transmission Date: 20211014
  Serious: No
  Sender: FDA-Public Use
  Company Number: None

PATIENT
  Age: 85 Year
  Sex: Female
  Weight: 65.77 kg

DRUGS (7)
  1. REPATHA [Suspect]
     Active Substance: EVOLOCUMAB
     Indication: BLOOD CHOLESTEROL
     Dosage: ?          OTHER STRENGTH:420MG/2.5ML;QUANTITY:1 INJECTION;OTHER ROUTE:INJECTION?
     Dates: start: 20210704, end: 20210706
  2. VITAMIN D [Concomitant]
     Active Substance: VITAMIN D NOS
  3. VITAMIN E [Concomitant]
     Active Substance: .ALPHA.-TOCOPHEROL
  4. ISOSORBIDE. [Concomitant]
     Active Substance: ISOSORBIDE
  5. CENTRUM SILVER [Concomitant]
     Active Substance: MINERALS\VITAMINS
  6. AMLADIPINE [Concomitant]
  7. VITAMINS C [Concomitant]

REACTIONS (5)
  - Nausea [None]
  - Muscle tightness [None]
  - Insomnia [None]
  - Gait disturbance [None]
  - Pruritus [None]

NARRATIVE: CASE EVENT DATE: 20210706
